FAERS Safety Report 5194427-0 (Version None)
Quarter: 2006Q4

REPORT INFORMATION
  Report Type: 
  Country: None (occurrence: None)
  Receive Date: 20061222
  Receipt Date: 20061214
  Transmission Date: 20070319
  Serious: Yes (Other)
  Sender: FDA-Public Use
  Company Number: HQWYE286215DEC06

PATIENT
  Age: 35 Year
  Sex: Male
  Weight: 74.91 kg

DRUGS (3)
  1. EFFEXOR XR [Suspect]
     Indication: MAJOR DEPRESSION
     Dosage: 225 MG 1X PER 1 DAY; ORAL
     Route: 048
     Dates: start: 20040101
  2. EFFEXOR XR [Suspect]
     Indication: OBSESSIVE-COMPULSIVE DISORDER
     Dosage: 225 MG 1X PER 1 DAY; ORAL
     Route: 048
     Dates: start: 20040101
  3. XANAX [Concomitant]

REACTIONS (2)
  - HYPERTHYROIDISM [None]
  - THYROTOXIC CRISIS [None]
